FAERS Safety Report 5429140-5 (Version None)
Quarter: 2007Q3

REPORT INFORMATION
  Report Type: 
  Country: None (occurrence: None)
  Receive Date: 20070829
  Receipt Date: 20070820
  Transmission Date: 20080115
  Serious: Yes (Hospitalization)
  Sender: FDA-Public Use
  Company Number: GB-BRISTOL-MYERS SQUIBB COMPANY-13889753

PATIENT

DRUGS (1)
  1. CETUXIMAB [Suspect]
     Indication: COLORECTAL CANCER STAGE IV
     Dosage: SUBSEQUENT WEELY DOSE-250 MG/M2
     Route: 041
     Dates: start: 20070801, end: 20070801

REACTIONS (1)
  - INTESTINAL OBSTRUCTION [None]
